FAERS Safety Report 18192992 (Version 2)
Quarter: 2020Q3

REPORT INFORMATION
  Report Type: Spontaneous
  Country: ES (occurrence: ES)
  Receive Date: 20200825
  Receipt Date: 20200921
  Transmission Date: 20201103
  Serious: Yes (Life-Threatening, Hospitalization)
  Sender: FDA-Public Use
  Company Number: ES-MYLANLABS-2020M1049482

PATIENT
  Age: 8 Year
  Sex: Male

DRUGS (9)
  1. PARACETAMOL [Suspect]
     Active Substance: ACETAMINOPHEN
     Indication: VIRAL INFECTION
  2. LEVETIRACETAM. [Suspect]
     Active Substance: LEVETIRACETAM
     Indication: VIRAL INFECTION
  3. DIAZEPAM. [Concomitant]
     Active Substance: DIAZEPAM
     Indication: EPILEPSY
     Dosage: UNKNOWN DOSE
     Route: 065
  4. DOPAMINE [Concomitant]
     Active Substance: DOPAMINE HYDROCHLORIDE
     Indication: PRODUCT USED FOR UNKNOWN INDICATION
     Dosage: UP TO 12 MICROG/KG/MIN
  5. LEVETIRACETAM. [Suspect]
     Active Substance: LEVETIRACETAM
     Indication: FEBRILE INFECTION
  6. PARACETAMOL [Suspect]
     Active Substance: ACETAMINOPHEN
     Indication: EPILEPSY
     Dosage: UNKNOWN DOSE
     Route: 065
  7. PARACETAMOL [Suspect]
     Active Substance: ACETAMINOPHEN
     Indication: FEBRILE INFECTION
  8. LEVETIRACETAM. [Suspect]
     Active Substance: LEVETIRACETAM
     Indication: EPILEPSY
     Dosage: UNKNOWN DOSE
     Route: 048
  9. NOREPINEPHRINE. [Concomitant]
     Active Substance: NOREPINEPHRINE
     Indication: PRODUCT USED FOR UNKNOWN INDICATION
     Dosage: UP TO 0.12 MICROG/KG/MIN

REACTIONS (10)
  - Epistaxis [Unknown]
  - Ulcerative keratitis [Recovering/Resolving]
  - Stomatitis haemorrhagic [Recovering/Resolving]
  - Hypotension [Unknown]
  - Keratitis [Recovering/Resolving]
  - Melaena [Unknown]
  - Acute kidney injury [Unknown]
  - Mucosal erosion [Recovering/Resolving]
  - Haemoglobin decreased [Unknown]
  - Toxic epidermal necrolysis [Recovering/Resolving]
